FAERS Safety Report 25659336 (Version 6)
Quarter: 2025Q4

REPORT INFORMATION
  Report Type: Spontaneous
  Country: US (occurrence: US)
  Receive Date: 20250808
  Receipt Date: 20251229
  Transmission Date: 20260118
  Serious: Yes (Other)
  Sender: SANDOZ
  Company Number: US-SANDOZ-SDZ2025US054972

PATIENT
  Age: 73 Year

DRUGS (7)
  1. AZITHROMYCIN [Suspect]
     Active Substance: AZITHROMYCIN
     Indication: Atypical mycobacterial infection
     Dosage: 500 MG 3X/WEEK, TAKE 1 TAB BY MOUTH 3 TIMES PER WEEK,
  2. AZITHROMYCIN [Suspect]
     Active Substance: AZITHROMYCIN
     Dosage: 600 MG, 3X/WEEK
  3. AZITHROMYCIN [Suspect]
     Active Substance: AZITHROMYCIN
     Indication: Product used for unknown indication
  4. ZITHROMAX [Suspect]
     Active Substance: AZITHROMYCIN DIHYDRATE
     Indication: Atypical mycobacterial infection
     Dosage: 500 MG 3X/WEEK, TAKE 1 TAB BY MOUTH 3 TIMES PER WEEK,
  5. ZITHROMAX [Suspect]
     Active Substance: AZITHROMYCIN DIHYDRATE
     Dosage: 600 MG 3X/WEEK
  6. RIFAMPIN [Suspect]
     Active Substance: RIFAMPIN
     Indication: Atypical mycobacterial infection
     Dosage: 600 MG 3X/WEEK, (300 MG CAP, TAKE 2 CAPS 3 TIMES PER WEEK)
  7. CLOFAZIMINE [Suspect]
     Active Substance: CLOFAZIMINE
     Indication: Mycobacterial infection
     Dosage: 100MG 3X/WEEK

REACTIONS (5)
  - Iritis [Recovered/Resolved]
  - Cytopenia [Recovered/Resolved]
  - Abdominal pain [Recovered/Resolved]
  - Asthenia [Unknown]
  - Diarrhoea [Unknown]

NARRATIVE: CASE EVENT DATE: 20250101
